FAERS Safety Report 23147038 (Version 1)
Quarter: 2023Q4

REPORT INFORMATION
  Report Type: Spontaneous
  Country: DE (occurrence: DE)
  Receive Date: 20231106
  Receipt Date: 20231106
  Transmission Date: 20240110
  Serious: Yes (Other)
  Sender: FDA-Public Use
  Company Number: None

PATIENT
  Age: 22 Year
  Sex: Male
  Weight: 56 kg

DRUGS (1)
  1. CITALOPRAM [Suspect]
     Active Substance: CITALOPRAM HYDROBROMIDE
     Indication: Anxiety
     Dosage: 20MG
     Route: 048

REACTIONS (5)
  - Erectile dysfunction [Recovered/Resolved with Sequelae]
  - Suicidal ideation [Unknown]
  - Male orgasmic disorder [Recovered/Resolved with Sequelae]
  - Genital hypoaesthesia [Recovered/Resolved with Sequelae]
  - Loss of libido [Recovered/Resolved with Sequelae]
